FAERS Safety Report 10432959 (Version 2)
Quarter: 2014Q4

REPORT INFORMATION
  Report Type: Spontaneous
  Country: US (occurrence: US)
  Receive Date: 20140905
  Receipt Date: 20141103
  Transmission Date: 20150528
  Serious: No
  Sender: FDA-Public Use
  Company Number: US-PFIZER INC-2014245711

PATIENT
  Age: 69 Year
  Sex: Female
  Weight: 52.2 kg

DRUGS (3)
  1. TAMOXIFEN [Suspect]
     Active Substance: TAMOXIFEN
     Dosage: 20 MG, UNK
     Dates: start: 20140101, end: 20140731
  2. AMOXICILLIN. [Concomitant]
     Active Substance: AMOXICILLIN
     Indication: INFECTION PROPHYLAXIS
     Dosage: UNK
  3. AROMASIN [Suspect]
     Active Substance: EXEMESTANE
     Indication: BREAST CANCER
     Dosage: 25 MG, 1X/DAY
     Route: 048
     Dates: start: 201408

REACTIONS (5)
  - Breast cancer [Unknown]
  - Hepatic function abnormal [Unknown]
  - Asthma [Unknown]
  - Muscle spasms [Unknown]
  - Disease progression [Unknown]

NARRATIVE: CASE EVENT DATE: 201408
